FAERS Safety Report 21414418 (Version 1)
Quarter: 2022Q4

REPORT INFORMATION
  Report Type: Spontaneous
  Country: CN (occurrence: CN)
  Receive Date: 20221006
  Receipt Date: 20221006
  Transmission Date: 20230113
  Serious: Yes (Hospitalization, Other)
  Sender: FDA-Public Use
  Company Number: CN-SA-2022SA401908

PATIENT
  Age: 61 Year
  Sex: Female

DRUGS (5)
  1. CLOPIDOGREL BISULFATE [Suspect]
     Active Substance: CLOPIDOGREL BISULFATE
     Indication: Antiplatelet therapy
     Dosage: 75 MG, QD, PRE OPERATIVE
     Route: 048
  2. CLOPIDOGREL BISULFATE [Suspect]
     Active Substance: CLOPIDOGREL BISULFATE
     Dosage: 75 MG, QD,POST OPERATIVE
     Route: 048
  3. ASPIRIN [Suspect]
     Active Substance: ASPIRIN
     Indication: Antiplatelet therapy
     Dosage: 100 MG, QD,PRE OPERATIVE
     Route: 048
  4. ASPIRIN [Suspect]
     Active Substance: ASPIRIN
     Dosage: 100 MG, QD, POST OPERATIVE
     Route: 048
  5. UNSPECIFIED INGREDIENT [Concomitant]
     Active Substance: UNSPECIFIED INGREDIENT
     Indication: Anticoagulant therapy
     Dosage: 50 TO 70 U/KG,ADDITIONAL 1/2 OF THE FIRST DOSE EVERY HOUR
     Route: 058

REACTIONS (9)
  - Cavernous sinus syndrome [Recovered/Resolved]
  - Headache [Recovered/Resolved]
  - Vomiting [Recovered/Resolved]
  - Nausea [Recovered/Resolved]
  - Trigeminal nerve disorder [Recovered/Resolved]
  - Condition aggravated [Recovered/Resolved]
  - Muscle atrophy [Recovered/Resolved]
  - Tumour thrombosis [Unknown]
  - Complication associated with device [Unknown]
